FAERS Safety Report 24526535 (Version 1)
Quarter: 2024Q4

REPORT INFORMATION
  Report Type: Report from Study
  Country: US (occurrence: US)
  Receive Date: 20241021
  Receipt Date: 20241021
  Transmission Date: 20250114
  Serious: No
  Sender: ROCHE
  Company Number: US-ROCHE-2381037

PATIENT
  Age: 11 Year
  Sex: Female

DRUGS (11)
  1. ZELBORAF [Suspect]
     Active Substance: VEMURAFENIB
     Indication: Brain neoplasm malignant
     Dosage: TAKE 2 TABLETS 480 MG BY MOUTH OVER 12 HRS
     Route: 048
     Dates: start: 201901, end: 20200928
  2. ZELBORAF [Suspect]
     Active Substance: VEMURAFENIB
     Indication: Astrocytoma, low grade
     Dosage: TWO 240 MG TABLETS IN MORNING AND TWO AT NIGHT ;ONGOING: YES
     Route: 048
     Dates: start: 20200928
  3. VALIUM [Suspect]
     Active Substance: DIAZEPAM
     Indication: Epilepsy
     Route: 065
     Dates: start: 2012, end: 2012
  4. KEPPRA [Concomitant]
     Active Substance: LEVETIRACETAM
     Indication: Epilepsy
     Dosage: 4 PILLS IN MORNING AND 4 AT NIGHT ;ONGOING: NO
     Route: 048
     Dates: start: 2016, end: 201902
  5. MELATONIN [Concomitant]
     Active Substance: MELATONIN
     Route: 048
     Dates: start: 2012, end: 2020
  6. MELATONIN [Concomitant]
     Active Substance: MELATONIN
     Dosage: AS NEEDED ;ONGOING: YES
     Route: 048
     Dates: start: 2020
  7. VITAMIN D3 [Concomitant]
     Active Substance: CHOLECALCIFEROL
  8. DIAZEPAM [Concomitant]
     Active Substance: DIAZEPAM
  9. FLUTICASONE [Concomitant]
     Active Substance: FLUTICASONE
  10. TOPIRAMATE [Concomitant]
     Active Substance: TOPIRAMATE
  11. PHENTERMINE [Concomitant]
     Active Substance: PHENTERMINE\PHENTERMINE HYDROCHLORIDE

REACTIONS (3)
  - Off label use [Unknown]
  - No adverse event [Unknown]
  - Off label use [Unknown]

NARRATIVE: CASE EVENT DATE: 20190101
